FAERS Safety Report 22970032 (Version 3)
Quarter: 2024Q1

REPORT INFORMATION
  Report Type: Spontaneous
  Country: AR (occurrence: AR)
  Receive Date: 20230922
  Receipt Date: 20240319
  Transmission Date: 20240409
  Serious: Yes (Life-Threatening, Hospitalization, Other)
  Sender: FDA-Public Use
  Company Number: AR-002147023-NVSC2021AR125267

PATIENT
  Sex: Female

DRUGS (12)
  1. ANAFRANIL [Suspect]
     Active Substance: CLOMIPRAMINE HYDROCHLORIDE
     Dosage: 75 MG, UNKNOWN
     Route: 065
  2. ANAFRANIL [Suspect]
     Active Substance: CLOMIPRAMINE HYDROCHLORIDE
     Indication: Agoraphobia
     Dosage: 25 MG, QD (1 TABLET AT NIGHT)
     Route: 065
  3. ANAFRANIL [Suspect]
     Active Substance: CLOMIPRAMINE HYDROCHLORIDE
     Indication: Fear
     Dosage: 25 MG, QD (1 TABLET AT NIGHT)
     Route: 065
     Dates: start: 197510
  4. ANAFRANIL [Suspect]
     Active Substance: CLOMIPRAMINE HYDROCHLORIDE
     Dosage: 25 MG, QD (1 TABLET AT NIGHT)
     Route: 065
  5. ANAFRANIL [Suspect]
     Active Substance: CLOMIPRAMINE HYDROCHLORIDE
     Indication: Somnolence
     Dosage: 0.5 DF (STARTED 1 YEAR AGO OR A LITTLE MORE), QD (1/2 OF 75 MG DAILY)
     Route: 065
  6. ANAFRANIL [Suspect]
     Active Substance: CLOMIPRAMINE HYDROCHLORIDE
     Indication: Crying
     Dosage: 25 MG (STARTED 3 YEARS AGO), QD (1 TABLET AT NIGHT)
     Route: 065
  7. ANAFRANIL [Suspect]
     Active Substance: CLOMIPRAMINE HYDROCHLORIDE
     Dosage: 25 MG, QD
     Route: 065
  8. ANAFRANIL [Suspect]
     Active Substance: CLOMIPRAMINE HYDROCHLORIDE
     Indication: Depression
     Dosage: UNK, QD (1 OF 25 MG)
     Route: 065
     Dates: start: 202012
  9. ANAFRANIL [Suspect]
     Active Substance: CLOMIPRAMINE HYDROCHLORIDE
     Indication: Anxiety
     Dosage: UNK, QD (1/2 OF 75 MG)
     Route: 065
     Dates: start: 202103
  10. ANAFRANIL [Suspect]
     Active Substance: CLOMIPRAMINE HYDROCHLORIDE
     Indication: Panic attack
     Dosage: UNK, QD (1 OF 25 MG, AT NIGHT)
     Route: 065
     Dates: start: 201710, end: 201806
  11. RIVOTRIL [Concomitant]
     Active Substance: CLONAZEPAM
     Indication: Product used for unknown indication
     Dosage: UNK
     Route: 065
  12. SERTRALINE HYDROCHLORIDE [Concomitant]
     Active Substance: SERTRALINE HYDROCHLORIDE
     Indication: Product used for unknown indication
     Dosage: UNK
     Route: 065

REACTIONS (31)
  - Feeling abnormal [Unknown]
  - Tremor [Recovering/Resolving]
  - Crying [Recovering/Resolving]
  - Nervousness [Recovering/Resolving]
  - Drug withdrawal convulsions [Unknown]
  - Cholinergic syndrome [Unknown]
  - Depressive symptom [Recovered/Resolved]
  - Shock [Unknown]
  - Malignant melanoma [Unknown]
  - Parkinson^s disease [Unknown]
  - Feeling of despair [Unknown]
  - Anxiety [Unknown]
  - Discomfort [Unknown]
  - Malaise [Unknown]
  - Coordination abnormal [Unknown]
  - Limb discomfort [Unknown]
  - Gait disturbance [Unknown]
  - Fatigue [Unknown]
  - Fear [Unknown]
  - Condition aggravated [Unknown]
  - Dizziness [Unknown]
  - Fall [Unknown]
  - Anger [Unknown]
  - Reflex test abnormal [Unknown]
  - Dysstasia [Unknown]
  - Somnolence [Unknown]
  - Drug intolerance [Unknown]
  - Product availability issue [Unknown]
  - Product use in unapproved indication [Unknown]
  - Wrong technique in product usage process [Unknown]
  - Incorrect dose administered [Unknown]
